FAERS Safety Report 25579500 (Version 1)
Quarter: 2025Q3

REPORT INFORMATION
  Report Type: Spontaneous
  Country: US (occurrence: US)
  Receive Date: 20250718
  Receipt Date: 20250718
  Transmission Date: 20251020
  Serious: No
  Sender: NOVO NORDISK
  Company Number: US-NOVOPROD-1274548

PATIENT
  Age: 62 Year
  Sex: Female

DRUGS (1)
  1. WEGOVY [Suspect]
     Active Substance: SEMAGLUTIDE
     Indication: Weight control
     Dosage: 0.5MG ONCE WEEKLY SATURDAY UPPER ARM
     Route: 058
     Dates: start: 20240502

REACTIONS (4)
  - Irritability [Not Recovered/Not Resolved]
  - Injection site haemorrhage [Recovered/Resolved]
  - Asthenia [Recovered/Resolved]
  - Device malfunction [Unknown]

NARRATIVE: CASE EVENT DATE: 20240504
